FAERS Safety Report 21989775 (Version 1)
Quarter: 2023Q1

REPORT INFORMATION
  Report Type: Report from Study
  Country: FR (occurrence: None)
  Receive Date: 20230214
  Receipt Date: 20230214
  Transmission Date: 20230418
  Serious: Yes (Hospitalization)
  Sender: FDA-Public Use
  Company Number: 2022A411633

PATIENT
  Age: 716 Month
  Sex: Female

DRUGS (2)
  1. DURVALUMAB [Suspect]
     Active Substance: DURVALUMAB
     Indication: Adenocarcinoma
     Dosage: FLAT DOSE OF 1500 MG ON DAY 1 OF EVERY 28-DAY CYCLE,
     Route: 042
     Dates: start: 20220802, end: 20221025
  2. SELUMETINIB [Suspect]
     Active Substance: SELUMETINIB
     Indication: Adenocarcinoma
     Dosage: 75 MG TWICE DAILY DOSE FOR 21 DAYS ON AND 7 DAYS OFF (A 28-DAY CYCLE).
     Route: 065
     Dates: start: 20220802, end: 20221114

REACTIONS (1)
  - Ascites [Recovered/Resolved]

NARRATIVE: CASE EVENT DATE: 20221209
